FAERS Safety Report 6355988-9 (Version None)
Quarter: 2009Q3

REPORT INFORMATION
  Report Type: 
  Country: None (occurrence: None)
  Receive Date: 20090915
  Receipt Date: 20090905
  Transmission Date: 20100115
  Serious: Yes (Other)
  Sender: FDA-Public Use
  Company Number: US-AMGEN-QUU363373

PATIENT
  Sex: Female

DRUGS (2)
  1. ENBREL [Suspect]
     Indication: PSORIASIS
     Route: 058
     Dates: start: 20071231
  2. ENBREL [Suspect]
     Indication: OSTEOPOROSIS

REACTIONS (6)
  - ANAEMIA [None]
  - ANXIETY [None]
  - ARTHRITIS [None]
  - DYSPNOEA [None]
  - PNEUMONIA [None]
  - SURGICAL PROCEDURE REPEATED [None]
